FAERS Safety Report 16965186 (Version 1)
Quarter: 2019Q4

REPORT INFORMATION
  Report Type: Spontaneous
  Country: DK (occurrence: DK)
  Receive Date: 20191028
  Receipt Date: 20191028
  Transmission Date: 20200122
  Serious: Yes (Death, Life-Threatening)
  Sender: FDA-Public Use
  Company Number: DK-B.I. PHARMACEUTICALS,INC./RIDGEFIELD-2019-12-110003

PATIENT
  Age: 88 Year
  Sex: Female

DRUGS (9)
  1. EUTHYROX [Concomitant]
     Active Substance: LEVOTHYROXINE SODIUM
     Indication: HYPOMETABOLISM
     Dosage: STYRKE: 25 ?G. DOSIS: EFTER SKRIFTLIG ANVISNING (25 MICROGRAM. DOSE: AFTER WRITTEN GUIDANCE)
     Route: 048
     Dates: start: 20190131
  2. TRIMOPAN [CITALOPRAM HYDROBROMIDE] [Concomitant]
     Indication: URINARY TRACT INFECTION
     Dosage: STYRKE: 100 MG
     Route: 048
     Dates: start: 20191008
  3. KALEORID [Concomitant]
     Active Substance: POTASSIUM CHLORIDE
     Indication: MINERAL SUPPLEMENTATION
     Dosage: STYRKE: 750 MG
     Route: 048
     Dates: start: 20150219
  4. MAGNESIA [MAGNESIUM HYDROXIDE] [Concomitant]
     Active Substance: MAGNESIUM HYDROXIDE
     Indication: CONSTIPATION
     Dosage: STYRKE: 500 MG.
     Route: 048
     Dates: start: 20190827
  5. PRADAXA [Suspect]
     Active Substance: DABIGATRAN ETEXILATE MESYLATE
     Indication: ATRIAL FIBRILLATION
     Dosage: STYRKE: 110MG
     Route: 048
     Dates: start: 20140703
  6. PANTOPRAZOL [PANTOPRAZOLE SODIUM SESQUIHYDRATE] [Concomitant]
     Indication: DYSPEPSIA
     Dosage: STYRKE: 20 MG
     Route: 048
     Dates: start: 20140706
  7. PINEX [Concomitant]
     Indication: PAIN
     Dosage: STYRKE: 500 MG
     Route: 048
     Dates: start: 20140827
  8. MIRTAZAPIN ACTAVIS [Concomitant]
     Active Substance: MIRTAZAPINE
     Indication: DEPRESSION
     Dosage: STYRKE: 15 MG
     Route: 048
     Dates: start: 20141208
  9. METOPROLOLSUCCINAT ^HEXAL^ [Concomitant]
     Active Substance: METOPROLOL SUCCINATE
     Indication: HYPERTENSION
     Dosage: STYRKE: 50 MG
     Route: 048
     Dates: start: 20140703

REACTIONS (2)
  - Gastrointestinal haemorrhage [Fatal]
  - Rectal haemorrhage [Fatal]

NARRATIVE: CASE EVENT DATE: 20191010
